FAERS Safety Report 9492658 (Version 1)
Quarter: 2013Q3

REPORT INFORMATION
  Report Type: Spontaneous
  Country: US (occurrence: US)
  Receive Date: 20130830
  Receipt Date: 20130830
  Transmission Date: 20140515
  Serious: Yes (Other)
  Sender: FDA-Public Use
  Company Number: CHPA2013US013282

PATIENT
  Age: 81 Year
  Sex: Female

DRUGS (5)
  1. EXCEDRIN EXTRA STRENGTH [Suspect]
     Indication: HEADACHE
     Dosage: UNK, PRN
     Route: 048
  2. VESICARE [Concomitant]
     Dosage: UNK, UNK
  3. BUTALBITAL [Concomitant]
     Indication: HEADACHE
     Dosage: UNK, UNK
  4. THYROID PREPARATIONS [Concomitant]
  5. TRAMADOL [Suspect]

REACTIONS (2)
  - Intervertebral disc protrusion [Unknown]
  - Back pain [Unknown]
